FAERS Safety Report 5269141-3 (Version None)
Quarter: 2007Q1

REPORT INFORMATION
  Report Type: 
  Country: None (occurrence: None)
  Receive Date: 20070319
  Receipt Date: 20070308
  Transmission Date: 20070707
  Serious: Yes (Hospitalization)
  Sender: FDA-Public Use
  Company Number: FR-BOEHRINGER INGELHEIM PHARMACEUTICALS, INC.-2007-FF-00331FF

PATIENT
  Age: 92 Year
  Sex: Female
  Weight: 45 kg

DRUGS (11)
  1. ASASANTINE LP [Suspect]
     Route: 048
     Dates: end: 20070115
  2. PREVISCAN [Suspect]
     Route: 048
     Dates: start: 20070105, end: 20070108
  3. CALCIPARINE [Suspect]
     Route: 058
     Dates: start: 20070104, end: 20070108
  4. AMLODIPINE [Concomitant]
  5. TRIATEC [Concomitant]
  6. LASIX [Concomitant]
  7. PERFALGAN [Concomitant]
  8. AUGMENTIN [Concomitant]
  9. SOLU-MEDROL [Concomitant]
  10. DIFFU K [Concomitant]
  11. NEXIUM [Concomitant]

REACTIONS (1)
  - OESOPHAGEAL HAEMORRHAGE [None]
